FAERS Safety Report 25250064 (Version 1)
Quarter: 2025Q2

REPORT INFORMATION
  Report Type: Spontaneous
  Country: CN (occurrence: CN)
  Receive Date: 20250429
  Receipt Date: 20250429
  Transmission Date: 20250717
  Serious: Yes (Other)
  Sender: PFIZER
  Company Number: CN-PFIZER INC-PV202500049474

PATIENT
  Age: 26 Year
  Sex: Female
  Weight: 57 kg

DRUGS (2)
  1. DALTEPARIN SODIUM [Suspect]
     Active Substance: DALTEPARIN SODIUM
     Indication: Abortion threatened
     Dosage: 5000 IU, 1X/DAY
     Route: 058
     Dates: start: 20250417, end: 20250418
  2. DYDROGESTERONE [Concomitant]
     Active Substance: DYDROGESTERONE
     Indication: Abortion threatened
     Dosage: 20 MG, 2X/DAY
     Route: 048
     Dates: start: 20250417, end: 20250418

REACTIONS (5)
  - Syncope [Recovering/Resolving]
  - Fall [Unknown]
  - Injection site bruising [Unknown]
  - Off label use [Unknown]
  - Maternal exposure timing unspecified [Unknown]

NARRATIVE: CASE EVENT DATE: 20250417
